FAERS Safety Report 6096988-6 (Version None)
Quarter: 2009Q1

REPORT INFORMATION
  Report Type: 
  Country: None (occurrence: None)
  Receive Date: 20090227
  Receipt Date: 20090216
  Transmission Date: 20090719
  Serious: Yes (Hospitalization)
  Sender: FDA-Public Use
  Company Number: PHHY2009IE06286

PATIENT
  Sex: Male

DRUGS (2)
  1. CLOZARIL [Suspect]
     Indication: SCHIZOPHRENIA
     Dosage: 300 MG DAILY
     Route: 048
     Dates: start: 19940824
  2. CLOZARIL [Suspect]
     Dosage: 75 MG DAILY
     Route: 048
     Dates: start: 20090214

REACTIONS (4)
  - CONVULSION [None]
  - GLASGOW COMA SCALE ABNORMAL [None]
  - HAEMORRHAGE [None]
  - POSTICTAL STATE [None]
